FAERS Safety Report 5069312-5 (Version None)
Quarter: 2006Q3

REPORT INFORMATION
  Report Type: 
  Country: None (occurrence: None)
  Receive Date: 20060714
  Receipt Date: 20060329
  Transmission Date: 20061208
  Serious: No
  Sender: FDA-Public Use
  Company Number: 2006SP001445

PATIENT
  Age: 61 Year
  Sex: Female
  Weight: 92.0802 kg

DRUGS (5)
  1. LUNESTA [Suspect]
     Indication: INSOMNIA
     Dosage: 3 MG;HS;ORAL
     Route: 048
     Dates: start: 20051201
  2. THYROID TAB [Concomitant]
  3. ANTIDEPRESSANTS [Concomitant]
  4. DRUG USED IN DIABETES [Concomitant]
  5. DESYREL [Concomitant]

REACTIONS (2)
  - INSOMNIA [None]
  - NIGHTMARE [None]
